FAERS Safety Report 6148512-7 (Version None)
Quarter: 2009Q2

REPORT INFORMATION
  Report Type: 
  Country: None (occurrence: None)
  Receive Date: 20090406
  Receipt Date: 20090406
  Transmission Date: 20091009
  Serious: Yes (Other)
  Sender: FDA-Public Use
  Company Number: None

PATIENT
  Age: 60 Year
  Sex: Female
  Weight: 79.3795 kg

DRUGS (1)
  1. TRAVATAN Z [Suspect]
     Indication: NORMAL TENSION GLAUCOMA
     Dosage: 1 DROP EACH EYE EACH NIGHT OPHTHALMIC
     Route: 047
     Dates: start: 20090301, end: 20090327

REACTIONS (4)
  - DEPRESSION [None]
  - EYE IRRITATION [None]
  - EYELID OEDEMA [None]
  - FATIGUE [None]
